FAERS Safety Report 21840684 (Version 2)
Quarter: 2023Q1

REPORT INFORMATION
  Report Type: Spontaneous
  Country: ES (occurrence: ES)
  Receive Date: 20230110
  Receipt Date: 20230117
  Transmission Date: 20230417
  Serious: Yes (Death, Hospitalization, Other)
  Sender: FDA-Public Use
  Company Number: ES-ALKEM LABORATORIES LIMITED-ES-ALKEM-2022-15104

PATIENT
  Weight: .64 kg

DRUGS (2)
  1. IBUPROFEN [Suspect]
     Active Substance: IBUPROFEN
     Indication: Patent ductus arteriosus
     Dosage: 10 MILLIGRAM/KILOGRAM
     Route: 042
  2. IBUPROFEN [Suspect]
     Active Substance: IBUPROFEN
     Dosage: 5 MILLIGRAM/KILOGRAM (SECOND DOSE)
     Route: 065

REACTIONS (6)
  - Hypoxia [Fatal]
  - Pulmonary hypertension [Fatal]
  - Oliguria [Fatal]
  - Hypotension [Fatal]
  - Respiratory acidosis [Fatal]
  - Metabolic acidosis [Fatal]
